FAERS Safety Report 7539272-3 (Version None)
Quarter: 2011Q2

REPORT INFORMATION
  Report Type: 
  Country: None (occurrence: None)
  Receive Date: 20110609
  Receipt Date: 20110609
  Transmission Date: 20111010
  Serious: Yes (Disabling)
  Sender: FDA-Public Use
  Company Number: None

PATIENT
  Age: 71 Year
  Sex: Male
  Weight: 99.7913 kg

DRUGS (2)
  1. LEVOXYL [Suspect]
  2. LEVOXYL [Suspect]

REACTIONS (4)
  - TRISMUS [None]
  - PARAESTHESIA [None]
  - PAIN [None]
  - MUSCLE SPASMS [None]
